FAERS Safety Report 4520962-1 (Version None)
Quarter: 2004Q4

REPORT INFORMATION
  Report Type: 
  Country: None (occurrence: None)
  Receive Date: 20041206
  Receipt Date: 20041206
  Transmission Date: 20050328
  Serious: Yes (Life-Threatening)
  Sender: FDA-Public Use
  Company Number: None

PATIENT
  Age: 60 Year
  Sex: Female

DRUGS (1)
  1. REMICADE [Suspect]
     Indication: RHEUMATOID ARTHRITIS
     Dates: start: 20040806, end: 20041007

REACTIONS (6)
  - AMNESIA [None]
  - DEPRESSED LEVEL OF CONSCIOUSNESS [None]
  - GAIT DISTURBANCE [None]
  - MENTAL STATUS CHANGES [None]
  - NAUSEA [None]
  - PYREXIA [None]
